FAERS Safety Report 4543456-6 (Version None)
Quarter: 2005Q1

REPORT INFORMATION
  Report Type: 
  Country: None (occurrence: None)
  Receive Date: 20050103
  Receipt Date: 20041108
  Transmission Date: 20050727
  Serious: Yes (Life-Threatening, Hospitalization, Disabling, Other)
  Sender: FDA-Public Use
  Company Number: US-MERCK-0411USA01510

PATIENT
  Age: 69 Year
  Sex: Male
  Weight: 101 kg

DRUGS (9)
  1. VIOXX [Suspect]
     Indication: PAIN
     Route: 048
     Dates: start: 20010501, end: 20040930
  2. VIOXX [Suspect]
     Indication: ARTHRITIS
     Route: 048
     Dates: start: 20010501, end: 20040930
  3. LANOXIN [Concomitant]
     Indication: ATRIAL FIBRILLATION
     Route: 065
  4. ISOSORBIDE [Concomitant]
     Route: 065
  5. NEXIUM [Concomitant]
     Indication: GASTROOESOPHAGEAL REFLUX DISEASE
     Route: 065
  6. COUMADIN [Concomitant]
     Indication: ATRIAL FIBRILLATION
     Route: 065
  7. LASIX [Concomitant]
     Indication: CARDIAC FAILURE CONGESTIVE
     Route: 065
  8. TOPROL-XL [Concomitant]
     Indication: CORONARY ARTERY DISEASE
     Route: 065
  9. [THERAPY UNSPECIFIED] [Concomitant]
     Route: 065

REACTIONS (2)
  - ATRIAL FIBRILLATION [None]
  - CARDIAC FAILURE CONGESTIVE [None]
